FAERS Safety Report 4361442-6 (Version None)
Quarter: 2004Q2

REPORT INFORMATION
  Report Type: 
  Country: None (occurrence: None)
  Receive Date: 20040521
  Receipt Date: 20030508
  Transmission Date: 20050107
  Serious: No
  Sender: FDA-Public Use
  Company Number: US-GLAXOSMITHKLINE-A0407700A

PATIENT
  Age: 41 Year
  Sex: Female

DRUGS (4)
  1. ZYBAN [Suspect]
     Route: 048
     Dates: start: 20030416, end: 20030503
  2. IRON SULFATETHIAMIN COMPOUND TAB [Concomitant]
  3. FOLATE [Concomitant]
  4. CELEXA [Concomitant]

REACTIONS (1)
  - URTICARIA [None]
